FAERS Safety Report 9758386 (Version 1)
Quarter: 2013Q4

REPORT INFORMATION
  Report Type: Spontaneous
  Country: AU (occurrence: AU)
  Receive Date: 20131216
  Receipt Date: 20131216
  Transmission Date: 20140711
  Serious: Yes (Disabling)
  Sender: FDA-Public Use
  Company Number: AU-VERTEX PHARMACEUTICALS INC-2013-011793

PATIENT
  Age: 59 Year
  Sex: Male

DRUGS (3)
  1. INCIVO [Suspect]
     Indication: HEPATITIS C
     Dosage: AT WEEK 12
     Route: 048
     Dates: start: 20130816, end: 20131108
  2. RIBAVIRIN [Suspect]
     Indication: HEPATITIS C
     Dates: start: 20130816
  3. PEGINTERFERON ALFA [Suspect]
     Indication: HEPATITIS C
     Dates: start: 20130816

REACTIONS (1)
  - Deafness [Not Recovered/Not Resolved]
